FAERS Safety Report 6822180-0 (Version None)
Quarter: 2010Q3

REPORT INFORMATION
  Report Type: 
  Country: None (occurrence: None)
  Receive Date: 20100707
  Receipt Date: 20100707
  Transmission Date: 20110219
  Serious: Yes (Life-Threatening, Hospitalization, Disabling, Other)
  Sender: FDA-Public Use
  Company Number: None

PATIENT
  Age: 83 Year
  Sex: Female
  Weight: 85 kg

DRUGS (1)
  1. HUMIRA [Suspect]
     Indication: RHEUMATOID ARTHRITIS
     Dosage: 40MG DAILY SQ
     Route: 058

REACTIONS (6)
  - APLASTIC ANAEMIA [None]
  - ASTHENIA [None]
  - LETHARGY [None]
  - PANCYTOPENIA [None]
  - PYREXIA [None]
  - WHEEZING [None]
